FAERS Safety Report 11314611 (Version 1)
Quarter: 2015Q3

REPORT INFORMATION
  Report Type: Report from Study
  Country: HU (occurrence: HU)
  Receive Date: 20150727
  Receipt Date: 20150727
  Transmission Date: 20151125
  Serious: Yes (Death, Hospitalization)
  Sender: FDA-Public Use
  Company Number: HU-AMGEN-2011-0451

PATIENT
  Age: 80 Year
  Sex: Female
  Weight: 75 kg

DRUGS (19)
  1. BISOCARD [Concomitant]
     Active Substance: BISOPROLOL
     Indication: ATRIAL FIBRILLATION
     Dosage: 5 MG, QD
     Route: 048
     Dates: start: 20111121
  2. ARANESP [Concomitant]
     Active Substance: DARBEPOETIN ALFA
     Indication: ANAEMIA
     Dosage: 150 MUG, QWK
     Route: 058
     Dates: start: 20111206, end: 20111207
  3. CIFRAN [Concomitant]
     Active Substance: CIPROFLOXACIN
     Indication: ANTIBIOTIC PROPHYLAXIS
     Dosage: 250 MG, QD
     Route: 048
     Dates: start: 20111205
  4. FERRLECIT [Concomitant]
     Active Substance: SODIUM FERRIC GLUCONATE COMPLEX
     Indication: ANAEMIA
     Dosage: 62.5 MG, PRN
     Route: 042
     Dates: start: 20111206, end: 20111206
  5. TELVIRAN [Concomitant]
     Indication: ANTIVIRAL PROPHYLAXIS
     Dosage: 400 MG, QD
     Route: 048
     Dates: start: 20111205
  6. KALIUM-R [Concomitant]
     Indication: PROPHYLAXIS
     Dosage: 2 G, QOD
     Route: 048
     Dates: start: 20111121
  7. SIMVOR [Concomitant]
     Active Substance: SIMVASTATIN
     Indication: HYPERCHOLESTEROLAEMIA
     Dosage: 20 MG, QD
     Route: 048
     Dates: start: 20111121
  8. LENALIDOMIDE [Suspect]
     Active Substance: LENALIDOMIDE
     Indication: PLASMA CELL MYELOMA
     Dosage: 25 MG, PER CHEMO REGIM
     Route: 065
     Dates: start: 20111205, end: 20111207
  9. FUROSEMID [Concomitant]
     Active Substance: FUROSEMIDE
     Indication: CARDIAC FAILURE
     Dosage: 40 MG, QOD
     Route: 048
     Dates: start: 20111121
  10. CARFILZOMIB [Suspect]
     Active Substance: CARFILZOMIB
     Indication: PLASMA CELL MYELOMA
     Dosage: 20 MG/M2, PER CHEMO REGIM
     Route: 042
     Dates: start: 20111205, end: 20111206
  11. AMILORID COMP [Concomitant]
     Active Substance: AMILORIDE HYDROCHLORIDE\HYDROCHLOROTHIAZIDE
     Indication: CARDIAC FAILURE
     Dosage: 5 MG, QD
     Route: 048
     Dates: start: 20111121
  12. REFLUXON [Concomitant]
     Indication: PROPHYLAXIS
     Dosage: 30 MG, BID
     Route: 048
     Dates: start: 20111205
  13. VITAMIN B12 [Concomitant]
     Active Substance: CYANOCOBALAMIN
     Indication: ANAEMIA
     Dosage: 1 G, PRN
     Route: 030
     Dates: start: 20111206, end: 20111206
  14. DEXAMETHASONE. [Suspect]
     Active Substance: DEXAMETHASONE
     Indication: PLASMA CELL MYELOMA
     Dosage: 40 MG, PER CHEMO REGIM
     Route: 065
     Dates: start: 20111205
  15. CLEXANE [Concomitant]
     Active Substance: ENOXAPARIN SODIUM
     Indication: ANTIPLATELET THERAPY
  16. DIGOXIN. [Concomitant]
     Active Substance: DIGOXIN
     Indication: ATRIAL FIBRILLATION
     Dosage: 0.25 MG, QD
     Route: 048
     Dates: start: 20111121
  17. CLEXANE [Concomitant]
     Active Substance: ENOXAPARIN SODIUM
     Indication: ANTICOAGULANT THERAPY
     Dosage: 40 MG, QD
     Route: 058
     Dates: start: 20111205
  18. LETROX [Concomitant]
     Indication: HYPOTHYROIDISM
     Dosage: 25 MUG, QD
     Route: 048
     Dates: start: 20111121
  19. SALSOL [Concomitant]
     Active Substance: ALBUTEROL SULFATE
     Indication: DEHYDRATION
     Dosage: 1000 ML, AS NECESSARY
     Route: 042
     Dates: start: 20111206, end: 20111207

REACTIONS (1)
  - Cardiopulmonary failure [Fatal]

NARRATIVE: CASE EVENT DATE: 20111207
